FAERS Safety Report 14008015 (Version 1)
Quarter: 2017Q3

REPORT INFORMATION
  Report Type: Spontaneous
  Country: JP (occurrence: JP)
  Receive Date: 20170925
  Receipt Date: 20170925
  Transmission Date: 20171128
  Serious: Yes (Other)
  Sender: FDA-Public Use
  Company Number: JP-HQ SPECIALTY-JP-2017INT000343

PATIENT
  Age: 67 Year
  Sex: Male

DRUGS (6)
  1. CISPLATIN. [Suspect]
     Active Substance: CISPLATIN
     Dosage: 50 MG/M2, ON DAY1 EVERY 28 DAYS
     Route: 065
  2. CISPLATIN. [Suspect]
     Active Substance: CISPLATIN
     Dosage: 40 MG/M2, DAY 1 EVERY 28 DAYS
     Route: 065
  3. IRINOTECAN [Suspect]
     Active Substance: IRINOTECAN
     Indication: NEUROENDOCRINE CARCINOMA
     Dosage: 60 MG/M2, ON DAYS 1, 8, AND 15, EVERY 28 DAYS
     Route: 065
     Dates: start: 201505
  4. IRINOTECAN [Suspect]
     Active Substance: IRINOTECAN
     Dosage: 50 MG/M2, DAYS 1 AND 8 EVERY 28 DAYS
     Route: 065
  5. IRINOTECAN [Suspect]
     Active Substance: IRINOTECAN
     Dosage: 40 MG/M2, DAYS 1 AND 8, EVERY 28 DAYS
     Route: 065
  6. CISPLATIN. [Suspect]
     Active Substance: CISPLATIN
     Indication: NEUROENDOCRINE CARCINOMA
     Dosage: 60 MG/M2, ON DAY 1 EVERY 28 DAYS
     Route: 065

REACTIONS (3)
  - Febrile neutropenia [Recovered/Resolved]
  - Agranulocytosis [Unknown]
  - Tumour lysis syndrome [Recovered/Resolved]

NARRATIVE: CASE EVENT DATE: 2015
